FAERS Safety Report 6283358-0 (Version None)
Quarter: 2009Q3

REPORT INFORMATION
  Report Type: 
  Country: None (occurrence: None)
  Receive Date: 20090721
  Receipt Date: 20090721
  Transmission Date: 20100115
  Serious: Yes (Other)
  Sender: FDA-Public Use
  Company Number: None

PATIENT
  Age: 35 Year
  Sex: Female
  Weight: 85.7298 kg

DRUGS (1)
  1. ABILIFY [Suspect]
     Indication: ANXIETY DISORDER
     Dosage: 1/2 TABLET DAILY PO
     Route: 048
     Dates: start: 20090629, end: 20090716

REACTIONS (1)
  - TONGUE SPASM [None]
